FAERS Safety Report 12427541 (Version 1)
Quarter: 2016Q2

REPORT INFORMATION
  Report Type: Report from Study
  Country: US (occurrence: US)
  Receive Date: 20160602
  Receipt Date: 20160602
  Transmission Date: 20160815
  Serious: Yes (Hospitalization)
  Sender: FDA-Public Use
  Company Number: US-SUN PHARMACEUTICAL INDUSTRIES LTD-2016US-117149

PATIENT
  Age: 45 Year
  Sex: Male

DRUGS (6)
  1. ETHAMBUTOL [Suspect]
     Active Substance: ETHAMBUTOL HYDROCHLORIDE
     Indication: MYCOBACTERIUM KANSASII INFECTION
     Dosage: UNK
     Route: 065
  2. STREPTOMYCIN [Suspect]
     Active Substance: STREPTOMYCIN\STREPTOMYCIN SULFATE
     Indication: MYCOBACTERIUM KANSASII INFECTION
     Dosage: UNK
     Route: 065
  3. RIFAMPIN. [Suspect]
     Active Substance: RIFAMPIN
     Indication: MYCOBACTERIUM KANSASII INFECTION
     Dosage: UNK
     Route: 065
  4. PYRAZINAMIDE. [Suspect]
     Active Substance: PYRAZINAMIDE
     Indication: MYCOBACTERIUM KANSASII INFECTION
     Dosage: UNK
     Route: 065
  5. ISONIAZID. [Suspect]
     Active Substance: ISONIAZID
     Indication: MYCOBACTERIUM KANSASII INFECTION
     Dosage: UNK
     Route: 065
  6. SULFISOXAZOLE [Suspect]
     Active Substance: SULFISOXAZOLE
     Indication: NOCARDIOSIS
     Dosage: UNK
     Route: 065

REACTIONS (1)
  - Renal impairment [Unknown]
